FAERS Safety Report 14854464 (Version 1)
Quarter: 2018Q2

REPORT INFORMATION
  Report Type: Spontaneous
  Country: LB (occurrence: LB)
  Receive Date: 20180507
  Receipt Date: 20180507
  Transmission Date: 20180711
  Serious: Yes (Hospitalization, Other)
  Sender: FDA-Public Use
  Company Number: LB-ABBVIE-18P-093-2293888-00

PATIENT
  Age: 75 Year
  Sex: Male

DRUGS (1)
  1. VENETOCLAX. [Suspect]
     Active Substance: VENETOCLAX
     Indication: PLASMA CELL MYELOMA
     Dosage: ONBOARDING: ACUTE MYELOID LEUKEMIA ONBOARDING.?MAINTENANCE DOSE: 400MG
     Route: 048
     Dates: end: 201804

REACTIONS (3)
  - Pneumonia [Recovering/Resolving]
  - Disease progression [Unknown]
  - Off label use [Unknown]
